FAERS Safety Report 23494005 (Version 1)
Quarter: 2024Q1

REPORT INFORMATION
  Report Type: Spontaneous
  Country: NO (occurrence: NO)
  Receive Date: 20240207
  Receipt Date: 20240207
  Transmission Date: 20240409
  Serious: Yes (Hospitalization)
  Sender: FDA-Public Use
  Company Number: None

PATIENT
  Age: 78 Year
  Sex: Female

DRUGS (23)
  1. PEMETREXED [Suspect]
     Active Substance: PEMETREXED
     Indication: Lung neoplasm malignant
     Dosage: DOSE NOT SPECIFIED, BUT PART OF TRIPLE TREATMENT WITH CARBOPLATIN AND PEMBROLIZUMAB. PROBABLY STARTE
     Route: 065
     Dates: start: 2023, end: 202309
  2. ASPIRIN [Concomitant]
     Active Substance: ASPIRIN
     Indication: Thrombosis prophylaxis
     Dosage: 75 MG, QD
     Route: 065
  3. CARBOPLATIN [Concomitant]
     Active Substance: CARBOPLATIN
     Indication: Lung neoplasm malignant
     Dosage: DOSE NOT SPECIFIED, BUT PART OF TRIPLE TREATMENT WITH PEMETREXED AND PEMBROLIZUMAB. PROBABLY STARTED
     Route: 065
     Dates: start: 2023
  4. CETIRIZINE [Concomitant]
     Active Substance: CETIRIZINE HYDROCHLORIDE
     Indication: Product used for unknown indication
     Dosage: 10 MG, QD
     Route: 065
  5. DEXAMETASON ABCUR [Concomitant]
     Indication: Product used for unknown indication
     Dosage: DOSED ACCORDING TO PHYSICIANS NOTE, DURING CHEMOTHERAPY
     Route: 065
     Dates: start: 2023
  6. DEXAMETHASONE [Concomitant]
     Active Substance: DEXAMETHASONE
     Indication: Chemotherapy side effect prophylaxis
     Dosage: 8 MG THE DAY BEFORE, 1 HOUR BEFORE AND THE DAY AFTER CHEMOTHERAPY
     Route: 065
  7. ESOMEPRAZOLE [Concomitant]
     Active Substance: ESOMEPRAZOLE
     Indication: Prophylaxis against gastrointestinal ulcer
     Dosage: 40 MG, QD (PROPHYLAXIS AGAINST DEXAMETHASONE INDUCED PEPTIC ULCER)
     Route: 065
  8. FOLIC ACID [Concomitant]
     Active Substance: FOLIC ACID
     Indication: Product used for unknown indication
     Dosage: 1 MG, QD (FOR USE DURING CHEMOTHERAPY)
     Route: 065
  9. IPRATROPIUM BROMIDE [Concomitant]
     Active Substance: IPRATROPIUM BROMIDE\IPRATROPIUM BROMIDE ANHYDROUS
     Indication: Product used for unknown indication
     Dosage: 0.25 MG/ML UP TO X 3
     Route: 065
  10. SODIUM PICOSULFATE [Concomitant]
     Active Substance: SODIUM PICOSULFATE
     Indication: Constipation
     Dosage: 5-10 DROPS UP TO X 2 WHEN NEEDED
     Route: 065
  11. LOPERAMIDE [Concomitant]
     Active Substance: LOPERAMIDE
     Indication: Diarrhoea
     Dosage: FIRST DOSE: 2 TABLETS, THEN 1 TABLET AFTER EVERY LOOSE STOOL. MAX 8 TABLETS PER DAY
     Route: 065
  12. MELATONIN [Concomitant]
     Active Substance: MELATONIN
     Indication: Insomnia
     Dosage: 1 MG, QD
     Route: 065
  13. METOCLOPRAMIDE [Concomitant]
     Active Substance: METOCLOPRAMIDE
     Indication: Nausea
     Dosage: 10 MG UP TO X 3
     Route: 065
  14. MIRTAZAPINE [Concomitant]
     Active Substance: MIRTAZAPINE
     Indication: Insomnia
     Dosage: 30 MG, QD
     Route: 065
  15. MORPHINE [Concomitant]
     Active Substance: MORPHINE
     Indication: Dyspnoea
     Dosage: 10 MG, BID
     Route: 065
  16. NICOTINE [Concomitant]
     Active Substance: NICOTINE
     Indication: Ex-tobacco user
     Dosage: 14 MG/24 HOURS
     Route: 065
  17. ONDANSETRON [Concomitant]
     Active Substance: ONDANSETRON
     Indication: Chemotherapy side effect prophylaxis
     Dosage: 8 MG X 2 ON THE DAY OF CHEMOTHERAPY
     Route: 065
  18. OXAZEPAM [Concomitant]
     Active Substance: OXAZEPAM
     Indication: Panic attack
     Dosage: 10 MG
     Route: 065
  19. ACETAMINOPHEN [Concomitant]
     Active Substance: ACETAMINOPHEN
     Indication: Pain
     Dosage: 1 G UP TO X 4
     Route: 065
  20. PEMBROLIZUMAB [Concomitant]
     Active Substance: PEMBROLIZUMAB
     Indication: Lung neoplasm malignant
     Dosage: DOSE NOT SPECIFIED, BUT PART OF TRIPLE TREATMENT WITH CARBOPLATIN AND PEMETREXED. PROBABLY STARTED I
     Route: 065
     Dates: start: 2023
  21. ALBUTEROL [Concomitant]
     Active Substance: ALBUTEROL
     Indication: Chronic obstructive pulmonary disease
     Dosage: 0,1 MG, 1-2 DOSES UP TO X 4
     Route: 065
  22. BECLOMETHASONE DIPROPIONATE\FORMOTEROL FUMARATE\GLYCOPYRROLATE [Concomitant]
     Active Substance: BECLOMETHASONE DIPROPIONATE\FORMOTEROL FUMARATE\GLYCOPYRROLATE
     Indication: Product used for unknown indication
     Dosage: 2 DF, BID
     Route: 065
  23. ZOPICLONE [Concomitant]
     Active Substance: ZOPICLONE
     Indication: Insomnia
     Dosage: 5 MG
     Route: 065

REACTIONS (1)
  - Hypersensitivity pneumonitis [Recovering/Resolving]

NARRATIVE: CASE EVENT DATE: 20230924
